FAERS Safety Report 11013698 (Version 2)
Quarter: 2015Q2

REPORT INFORMATION
  Report Type: Spontaneous
  Country: US (occurrence: US)
  Receive Date: 20150411
  Receipt Date: 20150526
  Transmission Date: 20150821
  Serious: No
  Sender: FDA-Public Use
  Company Number: US-JNJFOC-20120904798

PATIENT

DRUGS (3)
  1. OXYBUTYNIN CHLORIDE. [Suspect]
     Active Substance: OXYBUTYNIN CHLORIDE
     Indication: HYPERTONIC BLADDER
     Dosage: 6 CONSECUTIVE DAYS (DAYS 2?7)
     Route: 061
  2. OXYBUTYNIN HYDROCHLORIDE [Suspect]
     Active Substance: OXYBUTYNIN CHLORIDE
     Indication: HYPERTONIC BLADDER
     Dosage: 6 CONSECUTIVE DAYS (DAYS 2-7)
     Route: 065
  3. PLACEBO [Suspect]
     Active Substance: UNSPECIFIED INGREDIENT
     Indication: HYPERTONIC BLADDER
     Dosage: 6 CONSECUTIVE DAYS (DAYS 2-7)
     Route: 065

REACTIONS (1)
  - Nausea [Unknown]
